FAERS Safety Report 9346068 (Version 1)
Quarter: 2013Q2

REPORT INFORMATION
  Report Type: Spontaneous
  Country: US (occurrence: US)
  Receive Date: 20130613
  Receipt Date: 20130613
  Transmission Date: 20140414
  Serious: Yes (Hospitalization)
  Sender: FDA-Public Use
  Company Number: US-BAYER-2013-070801

PATIENT
  Age: 37 Year
  Sex: Female
  Weight: 145.13 kg

DRUGS (13)
  1. BEYAZ [Suspect]
     Indication: PREMENSTRUAL DYSPHORIC DISORDER
  2. SYNTHROID [Concomitant]
  3. LIPITOR [Concomitant]
  4. VISTARIL [Concomitant]
  5. COLACE [Concomitant]
  6. PRILOSEC [Concomitant]
  7. VILAZODONE [Concomitant]
  8. FLONASE [Concomitant]
  9. MELATONIN [Concomitant]
  10. CLOZAPINE [Concomitant]
  11. LITHIUM [Concomitant]
  12. VITAMIN D3 [Concomitant]
  13. IBUPROFEN [Concomitant]

REACTIONS (1)
  - Pulmonary embolism [Recovered/Resolved]
